FAERS Safety Report 9088633 (Version 1)
Quarter: 2013Q1

REPORT INFORMATION
  Report Type: Spontaneous
  Country: BE (occurrence: BE)
  Receive Date: 20130201
  Receipt Date: 20130201
  Transmission Date: 20140127
  Serious: Yes (Hospitalization)
  Sender: FDA-Public Use
  Company Number: BE-MERCK-1301BEL010391

PATIENT
  Age: 51 Year
  Sex: Male

DRUGS (3)
  1. VICTRELIS [Suspect]
     Indication: HEPATITIS C VIRUS TEST POSITIVE
     Dosage: 800 MG, QID
     Route: 048
     Dates: start: 20121205
  2. PEGINTRON [Suspect]
     Indication: HEPATITIS C VIRUS TEST POSITIVE
     Dosage: 100 MICROGRAM, QD
     Dates: start: 20121105
  3. REBETOL [Suspect]
     Indication: HEPATITIS C VIRUS TEST POSITIVE
     Dosage: 500 MG, BID
     Route: 048
     Dates: start: 20121105

REACTIONS (2)
  - Rash generalised [Recovering/Resolving]
  - Pruritus generalised [Recovering/Resolving]
